FAERS Safety Report 8942741 (Version 3)
Quarter: 2013Q1

REPORT INFORMATION
  Report Type: Spontaneous
  Country: US (occurrence: US)
  Receive Date: 20121204
  Receipt Date: 20130118
  Transmission Date: 20140127
  Serious: Yes (Other)
  Sender: FDA-Public Use
  Company Number: US-ELI_LILLY_AND_COMPANY-US201206008212

PATIENT
  Age: 84 Year
  Sex: Female

DRUGS (6)
  1. FORTEO [Suspect]
     Indication: OSTEOPOROSIS
     Dosage: 20 UG, QD
     Dates: start: 20120612
  2. FORTEO [Suspect]
     Dosage: 20 UG, QD
     Dates: start: 20120612
  3. FORTEO [Suspect]
     Dosage: 20 UG, QD
  4. FORTEO [Suspect]
     Dosage: 20 UG, QD
  5. VITAMIN B12 [Concomitant]
     Dosage: SHOT
  6. VITAMIN B12 [Concomitant]
     Dosage: CAPSULES

REACTIONS (14)
  - Age-related macular degeneration [Unknown]
  - Eye haemorrhage [Recovering/Resolving]
  - Age-related macular degeneration [Unknown]
  - Haemorrhage [Unknown]
  - White blood cell count decreased [Unknown]
  - Visual impairment [Recovering/Resolving]
  - Foreign body in eye [Recovered/Resolved]
  - Feeling abnormal [Unknown]
  - Injection site erythema [Unknown]
  - Asthenia [Unknown]
  - Injection site bruising [Unknown]
  - Fatigue [Not Recovered/Not Resolved]
  - Sleep disorder [Unknown]
  - Hyperhidrosis [Unknown]
